FAERS Safety Report 9326994 (Version 1)
Quarter: 2013Q2

REPORT INFORMATION
  Report Type: Spontaneous
  Country: US (occurrence: US)
  Receive Date: 20130604
  Receipt Date: 20130604
  Transmission Date: 20140414
  Serious: No
  Sender: FDA-Public Use
  Company Number: US-PFIZER INC-2013165025

PATIENT
  Age: 66 Year
  Sex: Male
  Weight: 90.7 kg

DRUGS (1)
  1. NITROSTAT [Suspect]
     Indication: CARDIAC DISORDER
     Dosage: 0.4 MG, AS NEEDED

REACTIONS (3)
  - Heart rate increased [Recovered/Resolved]
  - Paraesthesia oral [Recovered/Resolved]
  - Drug ineffective [Unknown]
